FAERS Safety Report 4421139-0 (Version None)
Quarter: 2004Q3

REPORT INFORMATION
  Report Type: 
  Country: None (occurrence: None)
  Receive Date: 20040804
  Receipt Date: 20040728
  Transmission Date: 20050211
  Serious: Yes (Life-Threatening, Hospitalization)
  Sender: FDA-Public Use
  Company Number: 2004UW04501

PATIENT
  Age: 53 Year
  Sex: Female
  Weight: 73.0291 kg

DRUGS (11)
  1. ESOMEPRAZOLE MAGNESIUM [Suspect]
     Dosage: 80 MG BID PO
     Route: 048
     Dates: start: 20040202, end: 20040209
  2. ESOMEPRAZOLE MAGNESIUM [Suspect]
     Dosage: 120 MG BID PO
     Route: 048
     Dates: start: 20040210
  3. VITAMIN B-12 [Concomitant]
  4. FERROUS SULFATE TAB [Concomitant]
  5. GUAIFENESIN DM [Concomitant]
  6. ATIVAN [Concomitant]
  7. FENTANYL [Concomitant]
  8. VERSED [Concomitant]
  9. PROTONIX [Concomitant]
  10. NORVASC [Concomitant]
  11. FOLIC ACID [Concomitant]

REACTIONS (5)
  - ASTHENIA [None]
  - DIARRHOEA [None]
  - HYPOCALCAEMIA [None]
  - HYPOKALAEMIA [None]
  - HYPOMAGNESAEMIA [None]
